FAERS Safety Report 9597089 (Version 1)
Quarter: 2013Q4

REPORT INFORMATION
  Report Type: Spontaneous
  Country: US (occurrence: US)
  Receive Date: 20131004
  Receipt Date: 20131004
  Transmission Date: 20140711
  Serious: Yes (Hospitalization)
  Sender: FDA-Public Use
  Company Number: US-ABBVIE-13P-163-1151973-00

PATIENT
  Sex: Male
  Weight: 66.28 kg

DRUGS (19)
  1. KALETRA 200/50 [Suspect]
     Indication: HIV INFECTION
     Dosage: 200/50
     Route: 048
     Dates: start: 2006
  2. ACYCLOVIR [Concomitant]
     Indication: PRODUCT USED FOR UNKNOWN INDICATION
  3. ALPRAZOLAM [Concomitant]
     Indication: PRODUCT USED FOR UNKNOWN INDICATION
  4. ADDERALL [Concomitant]
     Indication: PRODUCT USED FOR UNKNOWN INDICATION
  5. ASPIRIN [Concomitant]
     Indication: PRODUCT USED FOR UNKNOWN INDICATION
  6. FIORICET [Concomitant]
     Indication: PRODUCT USED FOR UNKNOWN INDICATION
  7. KLONIPIN [Concomitant]
     Indication: RESTLESS LEGS SYNDROME
  8. DEXEDRINE [Concomitant]
     Indication: PRODUCT USED FOR UNKNOWN INDICATION
  9. VALIUM [Concomitant]
     Indication: PRODUCT USED FOR UNKNOWN INDICATION
  10. FENTANYL [Concomitant]
     Indication: PRODUCT USED FOR UNKNOWN INDICATION
  11. NORCO [Concomitant]
     Indication: PRODUCT USED FOR UNKNOWN INDICATION
  12. EPIVIR [Concomitant]
     Indication: PRODUCT USED FOR UNKNOWN INDICATION
  13. KEPPRA [Concomitant]
     Indication: PRODUCT USED FOR UNKNOWN INDICATION
  14. LIDOCAINE [Concomitant]
     Indication: BACK PAIN
  15. MORPHINE ER [Concomitant]
     Indication: PRODUCT USED FOR UNKNOWN INDICATION
  16. MORPHINE IR [Concomitant]
     Indication: PRODUCT USED FOR UNKNOWN INDICATION
  17. PERCOCET [Concomitant]
     Indication: PRODUCT USED FOR UNKNOWN INDICATION
  18. ISENTRESS [Concomitant]
     Indication: PRODUCT USED FOR UNKNOWN INDICATION
  19. TESTOSTERONE CYPIONATE [Concomitant]
     Indication: PRODUCT USED FOR UNKNOWN INDICATION

REACTIONS (4)
  - Ophthalmic herpes zoster [Recovered/Resolved]
  - Pneumonia [Recovered/Resolved]
  - Meningitis [Recovered/Resolved]
  - Meningitis [Recovered/Resolved]
